FAERS Safety Report 19982718 (Version 1)
Quarter: 2021Q4

REPORT INFORMATION
  Report Type: Spontaneous
  Country: CN (occurrence: CN)
  Receive Date: 20211021
  Receipt Date: 20211021
  Transmission Date: 20220303
  Serious: Yes (Death, Other)
  Sender: FDA-Public Use
  Company Number: CN-ELI_LILLY_AND_COMPANY-CN202110007546

PATIENT

DRUGS (1)
  1. HUMALOG MIX75/25 [Suspect]
     Active Substance: INSULIN LISPRO
     Indication: Diabetes mellitus
     Dosage: UNK UNK, UNKNOWN
     Route: 058

REACTIONS (6)
  - Death [Fatal]
  - Renal failure [Unknown]
  - Diabetic foot [Unknown]
  - Blood glucose abnormal [Unknown]
  - Herpes zoster [Unknown]
  - Asthenia [Unknown]
